FAERS Safety Report 18450582 (Version 1)
Quarter: 2020Q4

REPORT INFORMATION
  Report Type: Spontaneous
  Country: US (occurrence: US)
  Receive Date: 20201030
  Receipt Date: 20201030
  Transmission Date: 20210114
  Serious: Yes (Hospitalization)
  Sender: FDA-Public Use
  Company Number: US-AMNEAL PHARMACEUTICALS-2020-AMRX-03388

PATIENT
  Age: 28 Year
  Sex: Female

DRUGS (1)
  1. METFORMIN HYDROCHLORIDE ER [Suspect]
     Active Substance: METFORMIN HYDROCHLORIDE
     Indication: PRODUCT USED FOR UNKNOWN INDICATION
     Dosage: 50 TABLETS
     Route: 065

REACTIONS (7)
  - Rhabdomyolysis [Recovering/Resolving]
  - Intentional overdose [Unknown]
  - Abdominal compartment syndrome [Recovering/Resolving]
  - Acute respiratory distress syndrome [Recovering/Resolving]
  - Metabolic acidosis [Recovering/Resolving]
  - Renal failure [Recovering/Resolving]
  - Distributive shock [Recovering/Resolving]
